FAERS Safety Report 6359368-1 (Version None)
Quarter: 2009Q3

REPORT INFORMATION
  Report Type: 
  Country: None (occurrence: None)
  Receive Date: 20090917
  Receipt Date: 20090914
  Transmission Date: 20100115
  Serious: Yes (Hospitalization)
  Sender: FDA-Public Use
  Company Number: ES-BRISTOL-MYERS SQUIBB COMPANY-14779847

PATIENT
  Age: 75 Year
  Sex: Male
  Weight: 54 kg

DRUGS (3)
  1. CISPLATIN [Suspect]
     Indication: NON-SMALL CELL LUNG CANCER STAGE III
     Dosage: RECENT INFUSION : 17AUG09
     Route: 042
     Dates: start: 20090713
  2. ETOPOSIDE [Suspect]
     Indication: NON-SMALL CELL LUNG CANCER STAGE III
     Dosage: RECENT INFUSION: 19AUG09
     Route: 042
     Dates: start: 20090713
  3. RADIATION THERAPY [Suspect]
     Indication: NON-SMALL CELL LUNG CANCER STAGE III
     Dosage: RECENT INFUSION: 21AUG09
     Route: 065
     Dates: start: 20090713

REACTIONS (2)
  - MUCOSAL INFLAMMATION [None]
  - SYNCOPE [None]
